FAERS Safety Report 7115576-3 (Version None)
Quarter: 2010Q4

REPORT INFORMATION
  Report Type: 
  Country: None (occurrence: None)
  Receive Date: 20101117
  Receipt Date: 20101117
  Transmission Date: 20110411
  Serious: Yes (Life-Threatening, Hospitalization)
  Sender: FDA-Public Use
  Company Number: None

PATIENT
  Sex: Male
  Weight: 9.0719 kg

DRUGS (1)
  1. HYLANDS TEETHING TABLETS VARIES HYLANDS [Suspect]
     Indication: TEETHING
     Dosage: 2-3 TABLETS EVERY 4 HOURS SUBLINGUAL
     Route: 060
     Dates: start: 20100101, end: 20100701

REACTIONS (3)
  - CONVULSION [None]
  - FALL [None]
  - SUBDURAL HAEMATOMA [None]
